FAERS Safety Report 18480167 (Version 16)
Quarter: 2024Q2

REPORT INFORMATION
  Report Type: Spontaneous
  Country: US (occurrence: US)
  Receive Date: 20201109
  Receipt Date: 20240508
  Transmission Date: 20240716
  Serious: No
  Sender: FDA-Public Use
  Company Number: US-PFIZER INC-2020431317

PATIENT
  Age: 85 Year
  Sex: Female
  Weight: 71.21 kg

DRUGS (6)
  1. PREMARIN [Suspect]
     Active Substance: ESTROGENS, CONJUGATED
     Indication: Vaginal prolapse
     Dosage: 0.625 MG, 2X/WEEK (ON MONDAY AND FRIDAY)
     Route: 067
     Dates: start: 202003
  2. PREMARIN [Suspect]
     Active Substance: ESTROGENS, CONJUGATED
     Indication: Cystocele
     Dosage: 0.625 MG, 2X/WEEK (ON MONDAY AND FRIDAY)
     Route: 067
  3. PREMARIN [Suspect]
     Active Substance: ESTROGENS, CONJUGATED
     Indication: Hot flush
     Dosage: 1.5 G, 2X/WEEK
     Route: 067
  4. PREMARIN [Suspect]
     Active Substance: ESTROGENS, CONJUGATED
     Indication: Vaginal prolapse
     Dosage: 0.3 MG, 3 TIMES A WEEK (MONDAY, WEDNESDAY AND FRIDAY)
     Route: 048
     Dates: start: 202003
  5. PREMARIN [Suspect]
     Active Substance: ESTROGENS, CONJUGATED
     Indication: Cystocele
     Dosage: 0.3 MG, 1X/DAY
     Route: 048
  6. PREMARIN [Suspect]
     Active Substance: ESTROGENS, CONJUGATED
     Indication: Hot flush

REACTIONS (3)
  - Memory impairment [Unknown]
  - Body height decreased [Unknown]
  - Off label use [Unknown]

NARRATIVE: CASE EVENT DATE: 20200301
